FAERS Safety Report 4748589-7 (Version None)
Quarter: 2005Q3

REPORT INFORMATION
  Report Type: 
  Country: None (occurrence: None)
  Receive Date: 20050819
  Receipt Date: 20050809
  Transmission Date: 20060218
  Serious: Yes (Hospitalization)
  Sender: FDA-Public Use
  Company Number: US-JNJFOC-20050100057

PATIENT
  Sex: Male
  Weight: 93.9 kg

DRUGS (30)
  1. INFLIXIMAB [Suspect]
     Route: 042
  2. INFLIXIMAB [Suspect]
     Route: 042
  3. INFLIXIMAB [Suspect]
     Route: 042
  4. INFLIXIMAB [Suspect]
     Route: 042
  5. INFLIXIMAB [Suspect]
     Route: 042
  6. INFLIXIMAB [Suspect]
     Route: 042
  7. INFLIXIMAB [Suspect]
     Route: 042
  8. INFLIXIMAB [Suspect]
     Indication: CROHN'S DISEASE
     Route: 042
  9. MESALAMINE [Suspect]
     Indication: CROHN'S DISEASE
  10. NARCOTIC ANALGESICS [Suspect]
     Indication: CROHN'S DISEASE
  11. MULTI-VITAMIN [Suspect]
  12. MULTI-VITAMIN [Suspect]
  13. MULTI-VITAMIN [Suspect]
  14. MULTI-VITAMIN [Suspect]
  15. MULTI-VITAMIN [Suspect]
  16. MULTI-VITAMIN [Suspect]
  17. MULTI-VITAMIN [Suspect]
  18. MULTI-VITAMIN [Suspect]
     Indication: CROHN'S DISEASE
  19. MERCAPTOPURINE [Suspect]
     Indication: CROHN'S DISEASE
  20. ACETAMINOPHEN [Concomitant]
  21. ACETAMINOPHEN [Concomitant]
  22. ACETAMINOPHEN [Concomitant]
  23. ACETAMINOPHEN [Concomitant]
  24. ACETAMINOPHEN [Concomitant]
     Indication: PROPHYLAXIS
  25. ANTI-HISTAMINE TAB [Concomitant]
  26. ANTI-HISTAMINE TAB [Concomitant]
  27. ANTI-HISTAMINE TAB [Concomitant]
  28. ANTI-HISTAMINE TAB [Concomitant]
  29. ANTI-HISTAMINE TAB [Concomitant]
  30. ANTI-HISTAMINE TAB [Concomitant]
     Indication: PROPHYLAXIS

REACTIONS (1)
  - POLYARTHRITIS [None]
